FAERS Safety Report 5219285-7 (Version None)
Quarter: 2007Q1

REPORT INFORMATION
  Report Type: 
  Country: None (occurrence: None)
  Receive Date: 20070125
  Receipt Date: 20070116
  Transmission Date: 20070707
  Serious: Yes (Hospitalization)
  Sender: FDA-Public Use
  Company Number: US-JNJFOC-20070104581

PATIENT
  Sex: Female
  Weight: 68.49 kg

DRUGS (2)
  1. DURAGESIC-100 [Suspect]
     Route: 062
  2. DURAGESIC-100 [Suspect]
     Indication: PAIN
     Route: 062

REACTIONS (18)
  - APPLICATION SITE NECROSIS [None]
  - APPLICATION SITE VESICLES [None]
  - DEAFNESS [None]
  - DERMATITIS CONTACT [None]
  - DRUG WITHDRAWAL SYNDROME [None]
  - GALLBLADDER DISORDER [None]
  - INAPPROPRIATE SCHEDULE OF DRUG ADMINISTRATION [None]
  - LARYNGITIS [None]
  - LIVER DISORDER [None]
  - LUNG DISORDER [None]
  - MIGRAINE [None]
  - NASOPHARYNGITIS [None]
  - NERVE COMPRESSION [None]
  - PAIN IN EXTREMITY [None]
  - POISONING [None]
  - TYMPANIC MEMBRANE DISORDER [None]
  - VOMITING [None]
  - WEIGHT DECREASED [None]
